FAERS Safety Report 12722586 (Version 1)
Quarter: 2016Q3

REPORT INFORMATION
  Report Type: Other
  Country: US (occurrence: US)
  Receive Date: 20160907
  Receipt Date: 20160907
  Transmission Date: 20161109
  Serious: No
  Sender: FDA-Public Use
  Company Number: US-COL_22860_2016

PATIENT
  Sex: Female

DRUGS (3)
  1. COLGATE TOTAL ADVANCE WHITENING [Suspect]
     Active Substance: SODIUM FLUORIDE\TRICLOSAN
     Indication: PRODUCT USED FOR UNKNOWN INDICATION
     Dosage: 1/8 OF AN INCH TO HEAD OF TOOTHBRUSH/BID/
     Route: 048
     Dates: start: 2016, end: 20160411
  2. ASPIRIN. [Concomitant]
     Active Substance: ASPIRIN
     Indication: PRODUCT USED FOR UNKNOWN INDICATION
     Dosage: NI/
  3. BLOOD PRESSURE MEDICINES [Concomitant]
     Active Substance: UNSPECIFIED INGREDIENT
     Indication: PRODUCT USED FOR UNKNOWN INDICATION
     Dosage: NI/

REACTIONS (4)
  - Swollen tongue [Recovering/Resolving]
  - Lip swelling [Recovering/Resolving]
  - Oral candidiasis [Recovering/Resolving]
  - Tongue disorder [Recovering/Resolving]

NARRATIVE: CASE EVENT DATE: 2016
